FAERS Safety Report 7800233-8 (Version None)
Quarter: 2011Q4

REPORT INFORMATION
  Report Type: 
  Country: None (occurrence: None)
  Receive Date: 20111006
  Receipt Date: 20111004
  Transmission Date: 20120403
  Serious: Yes (Hospitalization)
  Sender: FDA-Public Use
  Company Number: US-GLAXOSMITHKLINE-A0890320A

PATIENT
  Sex: Female
  Weight: 95 kg

DRUGS (15)
  1. SIMVASTATIN [Concomitant]
  2. POTASSIUM [Concomitant]
  3. NEURONTIN [Concomitant]
  4. ALBUTEROL [Concomitant]
  5. AVANDIA [Suspect]
     Indication: DIABETES MELLITUS
     Dosage: 4MG PER DAY
     Route: 048
     Dates: start: 20060101, end: 20100716
  6. HYDROCODONE BITARTRATE [Concomitant]
  7. COUMADIN [Concomitant]
  8. METOPROLOL TARTRATE [Concomitant]
  9. LISINOPRIL [Concomitant]
  10. HYDROCHLOROTHIAZIDE [Concomitant]
  11. ASPIRIN [Concomitant]
  12. GLIPIZIDE [Concomitant]
  13. ACETAMINOPHEN [Concomitant]
  14. ADVAIR DISKUS 100/50 [Concomitant]
  15. COLACE [Concomitant]

REACTIONS (3)
  - PULMONARY EMBOLISM [None]
  - CARDIAC FAILURE CONGESTIVE [None]
  - CARDIOMEGALY [None]
